FAERS Safety Report 10608352 (Version 1)
Quarter: 2014Q4

REPORT INFORMATION
  Report Type: Report from Study
  Country: US (occurrence: US)
  Receive Date: 20141125
  Receipt Date: 20141125
  Transmission Date: 20150529
  Serious: Yes (Hospitalization, Other)
  Sender: FDA-Public Use
  Company Number: US-US-EMD SERONO, INC.-7336586

PATIENT
  Sex: Male

DRUGS (1)
  1. REBIF [Suspect]
     Active Substance: INTERFERON BETA-1A
     Indication: MULTIPLE SCLEROSIS
     Route: 058
     Dates: start: 20081112

REACTIONS (5)
  - Influenza like illness [Unknown]
  - Wound infection [Recovering/Resolving]
  - Stab wound [Unknown]
  - Wound [Recovering/Resolving]
  - Immunodeficiency [Unknown]
